FAERS Safety Report 5017321-4 (Version None)
Quarter: 2006Q2

REPORT INFORMATION
  Report Type: 
  Country: None (occurrence: None)
  Receive Date: 20060414
  Receipt Date: 20060302
  Transmission Date: 20061013
  Serious: No
  Sender: FDA-Public Use
  Company Number: 2006SP001032

PATIENT
  Age: 72 Year
  Sex: Male
  Weight: 102.0593 kg

DRUGS (14)
  1. LUNESTA [Suspect]
     Indication: INSOMNIA
     Dosage: SEE IMAGE
     Route: 048
     Dates: start: 20060302, end: 20060302
  2. LUNESTA [Suspect]
     Indication: INSOMNIA
     Dosage: SEE IMAGE
     Route: 048
     Dates: start: 20060302, end: 20060302
  3. LUNESTA [Suspect]
     Indication: INSOMNIA
     Dosage: SEE IMAGE
     Route: 048
     Dates: start: 20060301
  4. KLONOPIN [Concomitant]
  5. METOPROLOL SUCCINATE [Concomitant]
  6. ABILIFY [Concomitant]
  7. ATORVASTATIN CALCIUM [Concomitant]
  8. MINOCYCLINE HCL [Concomitant]
  9. ULTRAM [Concomitant]
  10. OXCARBAZEPINE [Concomitant]
  11. NEXIUM [Concomitant]
  12. TAMSULOSIN HCL [Concomitant]
  13. OXYBUTYNIN [Concomitant]
  14. SINEMET [Concomitant]

REACTIONS (1)
  - MIDDLE INSOMNIA [None]
